FAERS Safety Report 4980674-7 (Version None)
Quarter: 2006Q2

REPORT INFORMATION
  Report Type: 
  Country: None (occurrence: None)
  Receive Date: 20060424
  Receipt Date: 20041222
  Transmission Date: 20061013
  Serious: Yes (Hospitalization)
  Sender: FDA-Public Use
  Company Number: US-MERCK-0412USA02805

PATIENT
  Age: 67 Year
  Sex: Male
  Weight: 82 kg

DRUGS (2)
  1. VIOXX [Suspect]
     Indication: BACK PAIN
     Route: 048
     Dates: start: 19960101, end: 20030101
  2. VIOXX [Concomitant]
     Route: 048
     Dates: start: 19960101, end: 20030101

REACTIONS (2)
  - ANGIOPATHY [None]
  - MYOCARDIAL INFARCTION [None]
